FAERS Safety Report 6125208-9 (Version None)
Quarter: 2009Q1

REPORT INFORMATION
  Report Type: 
  Country: None (occurrence: None)
  Receive Date: 20090318
  Receipt Date: 20090304
  Transmission Date: 20090719
  Serious: Yes (Other)
  Sender: FDA-Public Use
  Company Number: JPI-P-006458

PATIENT
  Age: 21 Year
  Sex: Female

DRUGS (4)
  1. LUVOX [Suspect]
     Indication: DEPRESSION
     Dosage: (200 MG,1 D),ORAL
     Route: 048
     Dates: start: 20020601
  2. CYANOCOBALAMIN [Concomitant]
  3. SALBUTAMOL [Concomitant]
  4. VITAMIN PREPARATION COMPOUND [Concomitant]

REACTIONS (4)
  - DRUG EXPOSURE DURING PREGNANCY [None]
  - INTRA-UTERINE DEATH [None]
  - PREGNANCY [None]
  - STILLBIRTH [None]
